FAERS Safety Report 21648516 (Version 1)
Quarter: 2022Q4

REPORT INFORMATION
  Report Type: Spontaneous
  Country: NO (occurrence: None)
  Receive Date: 20221128
  Receipt Date: 20221128
  Transmission Date: 20230113
  Serious: Yes (Other)
  Sender: FDA-Public Use
  Company Number: NO-INFO-20220099

PATIENT
  Weight: 16 kg

DRUGS (5)
  1. MIDAZOLAM [Suspect]
     Active Substance: MIDAZOLAM
     Dosage: 5 MG/ML, 3.2 ML/H (5MG/ML)
     Route: 040
  2. FENTANYL [Suspect]
     Active Substance: FENTANYL
     Dosage: 50 UG/ML, 0.64 ML/H (50UG/ML)
     Route: 040
  3. KETAMINE [Suspect]
     Active Substance: KETAMINE
     Dosage: 10 MG/ML, 4.8 ML/H (10MG/ML)
     Route: 040
  4. POTASSIUM CHLORIDE [Suspect]
     Active Substance: POTASSIUM CHLORIDE
     Dosage: 1 MMOL/ML, 0.2 ML/H (1MMOL/L)
     Route: 040
  5. PLASMA-LYTE 148 [Suspect]
     Active Substance: MAGNESIUM CHLORIDE\POTASSIUM CHLORIDE\SODIUM ACETATE\SODIUM CHLORIDE\SODIUM GLUCONATE
     Dosage: ()
     Route: 040

REACTIONS (3)
  - Drug chemical incompatibility [Unknown]
  - Product deposit [Unknown]
  - No adverse event [Unknown]
